FAERS Safety Report 8080723-6 (Version None)
Quarter: 2012Q1

REPORT INFORMATION
  Report Type: 
  Country: None (occurrence: None)
  Receive Date: 20120130
  Receipt Date: 20120124
  Transmission Date: 20120608
  Serious: Yes (Other)
  Sender: FDA-Public Use
  Company Number: PHHY2011US31500

PATIENT
  Sex: Male
  Weight: 75 kg

DRUGS (4)
  1. EXJADE [Suspect]
     Indication: IRON OVERLOAD
     Dosage: 1500 MG, QD
     Route: 048
  2. EXJADE [Suspect]
     Dosage: 1500 MG, DAILY
     Route: 048
     Dates: start: 20110202
  3. EXJADE [Suspect]
     Indication: IRON METABOLISM DISORDER
     Dosage: 1250 MG, QD
     Route: 048
     Dates: start: 20110201
  4. EXJADE [Suspect]
     Dosage: 500 MG, QD
     Route: 048

REACTIONS (5)
  - GASTROINTESTINAL DISORDER [None]
  - ABDOMINAL PAIN UPPER [None]
  - DEAFNESS [None]
  - NEPHROLITHIASIS [None]
  - DIARRHOEA [None]
